FAERS Safety Report 6817522-6 (Version None)
Quarter: 2010Q3

REPORT INFORMATION
  Report Type: 
  Country: None (occurrence: None)
  Receive Date: 20100706
  Receipt Date: 20100625
  Transmission Date: 20110219
  Serious: Yes (Other)
  Sender: FDA-Public Use
  Company Number: B0663623A

PATIENT
  Age: 26 Year
  Sex: Female

DRUGS (3)
  1. MALARONE [Suspect]
     Indication: MALARIA PROPHYLAXIS
     Route: 048
     Dates: start: 20100524, end: 20100616
  2. CONTRACEPTIVE PILL [Concomitant]
     Route: 048
  3. IRON PREPARATION [Concomitant]
     Route: 048

REACTIONS (5)
  - AGGRESSION [None]
  - CRYING [None]
  - DEPRESSION [None]
  - EMOTIONAL DISTRESS [None]
  - MOOD SWINGS [None]
